FAERS Safety Report 6151693-2 (Version None)
Quarter: 2009Q2

REPORT INFORMATION
  Report Type: 
  Country: None (occurrence: None)
  Receive Date: 20090410
  Receipt Date: 20090403
  Transmission Date: 20091009
  Serious: Yes (Hospitalization, Congenital Anomaly)
  Sender: FDA-Public Use
  Company Number: A0661742A

PATIENT
  Sex: Male
  Weight: 3.3 kg

DRUGS (7)
  1. PAXIL [Suspect]
     Indication: ANXIETY
     Dates: start: 20010101, end: 20020101
  2. PAXIL CR [Suspect]
     Indication: ANXIETY
     Dosage: 25MG PER DAY
     Dates: start: 20021015, end: 20030101
  3. VITAMIN TAB [Concomitant]
     Dates: start: 20021001, end: 20021201
  4. FERROUS SULFATE TAB [Concomitant]
     Dates: start: 20021001
  5. PROMETHEGAN [Concomitant]
     Dates: start: 20021101, end: 20030605
  6. TERBUTALINE SULFATE [Concomitant]
     Dates: start: 20030301
  7. AFEDITAB CR [Concomitant]
     Dates: start: 20030301

REACTIONS (34)
  - ACQUIRED OESOPHAGEAL WEB [None]
  - ANGIOPATHY [None]
  - AORTIC VALVE INCOMPETENCE [None]
  - ATRIAL SEPTAL DEFECT [None]
  - BLOOD IRON DECREASED [None]
  - BUNDLE BRANCH BLOCK RIGHT [None]
  - CARDIAC MURMUR [None]
  - CARDIOMEGALY [None]
  - CHYLOTHORAX [None]
  - COUGH [None]
  - CYANOSIS [None]
  - DARK CIRCLES UNDER EYES [None]
  - DEVELOPMENTAL DELAY [None]
  - DRUG EXPOSURE DURING PREGNANCY [None]
  - DYSPNOEA [None]
  - EPIGLOTTIC CYST [None]
  - FAILURE TO THRIVE [None]
  - FATIGUE [None]
  - LUNG ABSCESS [None]
  - MASS [None]
  - MITRAL VALVE INCOMPETENCE [None]
  - NIGHT SWEATS [None]
  - OEDEMA PERIPHERAL [None]
  - PATENT DUCTUS ARTERIOSUS [None]
  - PERICARDIAL EFFUSION [None]
  - PULMONARY HYPERTENSION [None]
  - PULMONARY VALVE INCOMPETENCE [None]
  - PULMONARY VALVE STENOSIS [None]
  - RESPIRATORY DISTRESS [None]
  - SKIN DISCOLOURATION [None]
  - TRANSPOSITION OF THE GREAT VESSELS [None]
  - VENTRICULAR HYPERTROPHY [None]
  - VENTRICULAR SEPTAL DEFECT [None]
  - VOMITING [None]
